FAERS Safety Report 18971262 (Version 1)
Quarter: 2021Q1

REPORT INFORMATION
  Report Type: Report from Study
  Country: None (occurrence: IT)
  Receive Date: 20210305
  Receipt Date: 20210305
  Transmission Date: 20210420
  Serious: Yes (Hospitalization)
  Sender: FDA-Public Use
  Company Number: IT-ABBVIE-21K-083-3800957-00

PATIENT
  Age: 81 Year
  Sex: Male

DRUGS (2)
  1. DUODOPA [Suspect]
     Active Substance: CARBIDOPA\LEVODOPA
  2. DUODOPA [Suspect]
     Active Substance: CARBIDOPA\LEVODOPA
     Indication: PARKINSON^S DISEASE
     Dosage: DAILY DOSE: 1318 MG; PUMP SETTING: MD: 4,6+3 CR: 3,5 (16H), ED: 2,5
     Route: 050
     Dates: start: 20140728

REACTIONS (3)
  - Abdominal hernia [Unknown]
  - Intestinal obstruction [Unknown]
  - Dysphagia [Unknown]

NARRATIVE: CASE EVENT DATE: 20210215
